FAERS Safety Report 14537146 (Version 1)
Quarter: 2018Q1

REPORT INFORMATION
  Report Type: Spontaneous
  Country: JP (occurrence: JP)
  Receive Date: 20180215
  Receipt Date: 20180215
  Transmission Date: 20180509
  Serious: Yes (Hospitalization)
  Sender: FDA-Public Use
  Company Number: JP-ELI_LILLY_AND_COMPANY-JP201802002605

PATIENT
  Age: 78 Year
  Sex: Male
  Weight: 61 kg

DRUGS (10)
  1. FLUOROURACIL. [Suspect]
     Active Substance: FLUOROURACIL
     Indication: COLON CANCER
     Dosage: 850 MG, CYCLICAL
     Route: 042
     Dates: start: 20171114
  2. TAKECAB [Concomitant]
     Active Substance: VONOPRAZAN FUMURATE
     Route: 048
  3. MECOBALAMIN [Concomitant]
     Active Substance: METHYLCOBALAMIN
     Route: 048
  4. ENALAPRIL MALEATE. [Concomitant]
     Active Substance: ENALAPRIL MALEATE
     Route: 048
  5. LYRICA [Concomitant]
     Active Substance: PREGABALIN
     Route: 048
  6. CYRAMZA [Suspect]
     Active Substance: RAMUCIRUMAB
     Indication: COLON CANCER
     Dosage: 500 MG, CYCLICAL
     Route: 041
     Dates: start: 20171114
  7. FLUOROURACIL. [Suspect]
     Active Substance: FLUOROURACIL
     Dosage: 3200 MG, CYCLICAL
     Route: 042
     Dates: start: 20171114
  8. TOPOTECIN [Suspect]
     Active Substance: IRINOTECAN HYDROCHLORIDE
     Indication: COLON CANCER
     Dosage: 200 MG, CYCLICAL
     Route: 041
     Dates: start: 20171114
  9. BIO-THREE [Concomitant]
     Active Substance: HERBALS
     Route: 048
  10. LOBU [Concomitant]
     Active Substance: LOBUCAVIR
     Route: 048

REACTIONS (3)
  - Acute kidney injury [Unknown]
  - Cardiac failure acute [Unknown]
  - Hypertension [Unknown]

NARRATIVE: CASE EVENT DATE: 20171123
